FAERS Safety Report 4263804-4 (Version None)
Quarter: 2004Q1

REPORT INFORMATION
  Report Type: 
  Country: None (occurrence: None)
  Receive Date: 20040102
  Receipt Date: 20030511
  Transmission Date: 20041129
  Serious: Yes (Hospitalization, Other)
  Sender: FDA-Public Use
  Company Number: KII-2003-0006444

PATIENT
  Age: 27 Year
  Sex: Female

DRUGS (6)
  1. HYDROCODONE BITARTRATE [Suspect]
     Indication: DRUG USE FOR UNKNOWN INDICATION
  2. THEOPHYLLINE [Suspect]
     Indication: DRUG USE FOR UNKNOWN INDICATION
  3. SOMA [Suspect]
     Indication: DRUG USE FOR UNKNOWN INDICATION
  4. FLEXERIL [Suspect]
     Indication: DRUG USE FOR UNKNOWN INDICATION
  5. TYLENOL [Suspect]
     Indication: DRUG USE FOR UNKNOWN INDICATION
  6. NARCAN [Concomitant]

REACTIONS (7)
  - BLOOD PRESSURE INCREASED [None]
  - BODY TEMPERATURE DECREASED [None]
  - COMA [None]
  - MULTIPLE DRUG OVERDOSE [None]
  - TACHYCARDIA [None]
  - THERAPY NON-RESPONDER [None]
  - VOMITING [None]
